FAERS Safety Report 13718239 (Version 1)
Quarter: 2017Q3

REPORT INFORMATION
  Report Type: Report from Study
  Country: CN (occurrence: CN)
  Receive Date: 20170705
  Receipt Date: 20170705
  Transmission Date: 20171127
  Serious: No
  Sender: FDA-Public Use
  Company Number: CN-UCBSA-2017022100

PATIENT

DRUGS (1)
  1. LEVETIRACETAM. [Suspect]
     Active Substance: LEVETIRACETAM
     Indication: EPILEPSY
     Dosage: 10 MG/KG/D, 2 TIMES/D
     Route: 048

REACTIONS (10)
  - Nausea [Recovering/Resolving]
  - Headache [Recovering/Resolving]
  - Therapeutic response unexpected [Unknown]
  - Feeling abnormal [Recovering/Resolving]
  - Drug ineffective [Unknown]
  - Somnolence [Recovering/Resolving]
  - Off label use [Unknown]
  - Leukopenia [Recovering/Resolving]
  - Rash [Recovering/Resolving]
  - Memory impairment [Recovering/Resolving]
